FAERS Safety Report 11363050 (Version 1)
Quarter: 2015Q3

REPORT INFORMATION
  Report Type: Other
  Country: FR (occurrence: FR)
  Receive Date: 20150810
  Receipt Date: 20150810
  Transmission Date: 20151125
  Serious: Yes (Hospitalization)
  Sender: FDA-Public Use
  Company Number: FR-TAKEDA-2015TUS010394

PATIENT
  Age: 82 Year
  Sex: Female

DRUGS (11)
  1. ADENURIC [Suspect]
     Active Substance: FEBUXOSTAT
     Dosage: UNK
     Route: 048
     Dates: start: 20150615, end: 20150623
  2. SPIRONOLACTONE. [Suspect]
     Active Substance: SPIRONOLACTONE
     Indication: PRODUCT USED FOR UNKNOWN INDICATION
     Dosage: UNK
     Route: 065
     Dates: end: 201501
  3. PYOSTACINE [Suspect]
     Active Substance: PRISTINAMYCIN
     Indication: PRODUCT USED FOR UNKNOWN INDICATION
     Dosage: UNK
     Route: 048
     Dates: start: 20150615, end: 20150623
  4. ADENURIC [Suspect]
     Active Substance: FEBUXOSTAT
     Indication: PRODUCT USED FOR UNKNOWN INDICATION
     Dosage: UNK
     Route: 048
     Dates: end: 201501
  5. ULTRA-LEVURE [Suspect]
     Active Substance: SACCHAROMYCES CEREVISIAE
     Indication: PRODUCT USED FOR UNKNOWN INDICATION
     Dosage: UNK
     Route: 048
     Dates: start: 20150615, end: 20150623
  6. FLAGYL [Suspect]
     Active Substance: METRONIDAZOLE\METRONIDAZOLE HYDROCHLORIDE
     Indication: PRODUCT USED FOR UNKNOWN INDICATION
     Dosage: UNK
     Route: 048
     Dates: start: 20150615, end: 20150623
  7. VALSARTAN. [Suspect]
     Active Substance: VALSARTAN
     Indication: PRODUCT USED FOR UNKNOWN INDICATION
     Dosage: UNK
     Route: 048
     Dates: end: 201501
  8. SPIRONOLACTONE. [Suspect]
     Active Substance: SPIRONOLACTONE
     Dosage: UNK
     Route: 065
     Dates: start: 20150615
  9. VALSARTAN. [Suspect]
     Active Substance: VALSARTAN
     Dosage: UNK
     Route: 048
     Dates: start: 20150615, end: 20150623
  10. CYTEAL [Suspect]
     Active Substance: CHLORHEXIDINE GLUCONATE\CHLOROCRESOL\HEXAMIDINE DIISETHIONATE
     Indication: PRODUCT USED FOR UNKNOWN INDICATION
     Dosage: UNK
     Route: 003
     Dates: start: 20150615, end: 20150623
  11. BISEPTINE /01186301/ [Suspect]
     Active Substance: BENZALKONIUM CHLORIDE\BENZYL ALCOHOL\CHLORHEXIDINE
     Indication: PRODUCT USED FOR UNKNOWN INDICATION
     Dosage: UNK
     Route: 003
     Dates: start: 20150615, end: 20150623

REACTIONS (2)
  - Eosinophilia [Recovering/Resolving]
  - Rash maculo-papular [Recovering/Resolving]

NARRATIVE: CASE EVENT DATE: 20150615
